FAERS Safety Report 7734191 (Version 7)
Quarter: 2012Q4

REPORT INFORMATION
  Report Type: Report from Study
  Country: US (occurrence: US)
  Receive Date: 20101223
  Receipt Date: 20120924
  Transmission Date: 20130627
  Serious: Yes (Hospitalization)
  Sender: FDA-Public Use
  Company Number: US-ROCHE-738084

PATIENT
  Age: 60 Year
  Sex: Female
  Weight: 68 kg

DRUGS (18)
  1. HERCEPTIN [Suspect]
     Indication: BREAST CANCER
     Dosage: LOADING DOSE
     Route: 042
  2. HERCEPTIN [Suspect]
     Dosage: FORM: VIAL, DOSE LEVEL : 6 MG/KG, LAST DOSE PRIOR TO SAE ON 29 NOV 2010, DELAY/HOLD: 29 NOV 2010.
     Route: 042
     Dates: start: 20100816, end: 20110328
  3. DOCETAXEL/DOCETAXEL [Suspect]
     Indication: BREAST CANCER
     Dosage: FORM: VIAL, DOSE LEVEL : 60 MG/M2, LAST DOSE PRIOR TO SAE ON 29 NOV  2010
     Route: 042
  4. CARBOPLATIN/CARBOPLATIN [Suspect]
     Indication: BREAST CANCER
     Dosage: FORM: VIAL, DOSE LEVEL : 6 AUC, LAST DOSE PRIOR TO SAE ON 29 OCT 2010
     Route: 042
  5. CARBOPLATIN/CARBOPLATIN [Suspect]
     Dosage: DOSE LEVEL: 5 AUC
     Route: 042
  6. AVASTIN [Suspect]
     Indication: BREAST CANCER
     Dosage: Dose level: 15mg/kg. Last dose prior to SAE: 29/Nov/2010. Delay/hold: 29/Nov/2010
     Route: 042
     Dates: start: 20100816, end: 20110328
  7. OMEPRAZOLE [Concomitant]
     Route: 065
  8. TRAZODONE [Concomitant]
     Route: 065
  9. ALLEGRA [Concomitant]
     Route: 065
  10. VITAMIN D NOS [Concomitant]
     Route: 065
  11. FERROUS SULPHATE [Concomitant]
     Route: 065
  12. VITAMIN B12 [Concomitant]
     Route: 065
  13. FISH OIL [Concomitant]
     Route: 065
  14. DECADRON [Concomitant]
     Dosage: DRUG: DECADRON 1 TAB860X 3 DAYS
     Route: 065
     Dates: start: 20101017, end: 20101020
  15. ZOFRAN [Concomitant]
     Route: 065
  16. COMPAZINE [Concomitant]
     Route: 065
  17. AMLODIPINE [Concomitant]
     Route: 065
  18. PEGFILGRASTIM [Concomitant]
     Route: 065
     Dates: start: 20101110, end: 20101110

REACTIONS (5)
  - Nausea [Recovered/Resolved]
  - Vomiting [Recovered/Resolved]
  - Febrile neutropenia [Recovered/Resolved]
  - Dehydration [Recovered/Resolved]
  - Neutropenia [Recovered/Resolved]
